FAERS Safety Report 8595741 (Version 2)
Quarter: 2013Q1

REPORT INFORMATION
  Report Type: Spontaneous
  Country: US (occurrence: US)
  Receive Date: 20120604
  Receipt Date: 20130315
  Transmission Date: 20140127
  Serious: No
  Sender: FDA-Public Use
  Company Number: US-ASTRAZENECA-2011SE69460

PATIENT
  Age: 68 Year
  Sex: Female

DRUGS (1)
  1. SEROQUEL [Suspect]
     Indication: DEPRESSION
     Route: 048

REACTIONS (4)
  - Diabetes mellitus [Unknown]
  - Insomnia [Unknown]
  - Feeling abnormal [Unknown]
  - Drug dose omission [Unknown]
